FAERS Safety Report 17031437 (Version 2)
Quarter: 2019Q4

REPORT INFORMATION
  Report Type: Spontaneous
  Country: US (occurrence: US)
  Receive Date: 20191114
  Receipt Date: 20191202
  Transmission Date: 20200122
  Serious: No
  Sender: FDA-Public Use
  Company Number: US-PFIZER INC-2019489842

PATIENT
  Age: 80 Year
  Sex: Female
  Weight: 47.63 kg

DRUGS (3)
  1. LATANOPROST. [Suspect]
     Active Substance: LATANOPROST
     Indication: GLAUCOMA
     Dosage: 1 GTT, 1X/DAY (1 DROP IN EACH EYE AT NIGHT)
  2. BRIMONIDINE [Concomitant]
     Active Substance: BRIMONIDINE TARTRATE
     Indication: GLAUCOMA
     Dosage: UNK, 2X/DAY (0.2 %, MORNING AND NIGHT/BOTH EYES)
  3. DORZOLAMIDE HCL AND TIMOLOL MALEATE [Concomitant]
     Active Substance: DORZOLAMIDE HYDROCHLORIDE\TIMOLOL MALEATE
     Indication: GLAUCOMA
     Dosage: UNK

REACTIONS (4)
  - Accidental exposure to product [Unknown]
  - Eye oedema [Not Recovered/Not Resolved]
  - Exposure via skin contact [Unknown]
  - Skin hyperpigmentation [Recovered/Resolved]
